FAERS Safety Report 18487416 (Version 1)
Quarter: 2020Q4

REPORT INFORMATION
  Report Type: Report from Study
  Country: US (occurrence: US)
  Receive Date: 20201110
  Receipt Date: 20201110
  Transmission Date: 20210114
  Serious: No
  Sender: FDA-Public Use
  Company Number: NVSC2020US297521

PATIENT
  Sex: Male

DRUGS (2)
  1. AFINITOR [Suspect]
     Active Substance: EVEROLIMUS
     Indication: TUBEROUS SCLEROSIS COMPLEX
     Dosage: 15 MG
     Route: 048
     Dates: start: 20150327
  2. AFINITOR [Suspect]
     Active Substance: EVEROLIMUS
     Dosage: DOSE INCREASED
     Route: 048

REACTIONS (2)
  - Acne [Unknown]
  - Oral pain [Unknown]
